FAERS Safety Report 6048251-7 (Version None)
Quarter: 2009Q1

REPORT INFORMATION
  Report Type: 
  Country: None (occurrence: None)
  Receive Date: 20090123
  Receipt Date: 20090119
  Transmission Date: 20090719
  Serious: Yes (Hospitalization)
  Sender: FDA-Public Use
  Company Number: FR-BRISTOL-MYERS SQUIBB COMPANY-14475990

PATIENT
  Age: 41 Year
  Sex: Male

DRUGS (6)
  1. VIDEX [Suspect]
     Route: 048
     Dates: end: 20081125
  2. SUSTIVA [Suspect]
  3. VIREAD [Suspect]
     Dosage: 1 DF= 1 TABLET
     Route: 048
  4. KALETRA [Suspect]
     Dosage: 1 DF= 4 TABLETS
     Route: 048
  5. DEPAKENE [Suspect]
     Route: 048
  6. TEGRETOL [Suspect]
     Dosage: LP ONE UNIT

REACTIONS (6)
  - BLOOD LACTIC ACID INCREASED [None]
  - BLOOD PHOSPHORUS DECREASED [None]
  - GENERAL PHYSICAL HEALTH DETERIORATION [None]
  - MITOCHONDRIAL CYTOPATHY [None]
  - OVERDOSE [None]
  - RENAL TUBULAR DISORDER [None]
